FAERS Safety Report 5669495-X (Version None)
Quarter: 2008Q1

REPORT INFORMATION
  Report Type: 
  Country: None (occurrence: None)
  Receive Date: 20080317
  Receipt Date: 20080314
  Transmission Date: 20080703
  Serious: Yes (Death, Hospitalization)
  Sender: FDA-Public Use
  Company Number: KR-ASTRAZENECA-2007AP08023

PATIENT
  Age: 22998 Day
  Sex: Male

DRUGS (6)
  1. IRESSA [Suspect]
     Indication: NON-SMALL CELL LUNG CANCER
     Route: 048
     Dates: start: 20070208
  2. DOCETAXEL [Concomitant]
     Dosage: 4 CYCLES FIRST LINE THERAPY
     Dates: start: 20060501, end: 20060801
  3. CARBOPLATIN [Concomitant]
     Dosage: 4 CYCLES FIRST LINE THERAPY
     Dates: start: 20060501, end: 20060801
  4. ALIMTA [Concomitant]
     Dosage: 6 CYCLES SECOND LINE THERAPY
     Dates: start: 20060901, end: 20061201
  5. CEFEPIME [Concomitant]
     Route: 042
     Dates: start: 20070208, end: 20070216
  6. MORPHINE [Concomitant]
     Indication: PAIN
     Route: 042
     Dates: start: 20070212, end: 20070216

REACTIONS (1)
  - HEPATITIS FULMINANT [None]
